FAERS Safety Report 7951538-1 (Version None)
Quarter: 2011Q4

REPORT INFORMATION
  Report Type: 
  Country: None (occurrence: None)
  Receive Date: 20111201
  Receipt Date: 20111130
  Transmission Date: 20120403
  Serious: Yes (Other)
  Sender: FDA-Public Use
  Company Number: SG-BAYER-2011-115181

PATIENT
  Sex: Male

DRUGS (3)
  1. SEPTRA [Suspect]
  2. PHENOXYMETHYL PENICILLIN [Suspect]
  3. ACETYLSALICYLIC ACID SRT [Suspect]

REACTIONS (1)
  - ANGIOEDEMA [None]
